FAERS Safety Report 6993311-7 (Version None)
Quarter: 2010Q3

REPORT INFORMATION
  Report Type: 
  Country: None (occurrence: None)
  Receive Date: 20100917
  Receipt Date: 20100212
  Transmission Date: 20110219
  Serious: No
  Sender: FDA-Public Use
  Company Number: US-ASTRAZENECA-2010SE06436

PATIENT
  Age: 19873 Day
  Sex: Female

DRUGS (1)
  1. SEROQUEL XR [Suspect]
     Route: 048
     Dates: start: 20090801, end: 20100207

REACTIONS (4)
  - DRUG DOSE OMISSION [None]
  - NAUSEA [None]
  - PANIC DISORDER [None]
  - WITHDRAWAL SYNDROME [None]
